FAERS Safety Report 25926315 (Version 2)
Quarter: 2025Q4

REPORT INFORMATION
  Report Type: Spontaneous
  Country: CN (occurrence: CN)
  Receive Date: 20251015
  Receipt Date: 20251023
  Transmission Date: 20260118
  Serious: Yes (Hospitalization)
  Sender: NOVO NORDISK
  Company Number: CN-NOVOPROD-1536516

PATIENT
  Age: 35 Year
  Sex: Male
  Weight: 107 kg

DRUGS (4)
  1. INSULIN ASPART\INSULIN DEGLUDEC [Suspect]
     Active Substance: INSULIN ASPART\INSULIN DEGLUDEC
     Indication: Type 2 diabetes mellitus
     Dosage: 14 IU, BID (14 UNITS EACH TIME IN THE MORNING AND EVENING; IN THE ABDOMEN)
     Route: 058
     Dates: start: 2023
  2. EMPAGLIFLOZIN\METFORMIN HYDROCHLORIDE [Concomitant]
     Active Substance: EMPAGLIFLOZIN\METFORMIN HYDROCHLORIDE
     Indication: Type 2 diabetes mellitus
     Dosage: UNK (ONE TABLET PER DOSE), BID
  3. EZETIMIBE [Concomitant]
     Active Substance: EZETIMIBE
     Indication: Type 2 diabetes mellitus
     Dosage: UNK (ONE TABLET EVERY MORNING), QD
  4. FENOFIBRATE [Concomitant]
     Active Substance: FENOFIBRATE
     Indication: Type 2 diabetes mellitus
     Dosage: UNK (ONE TABLET EVERY EVENING), QD

REACTIONS (1)
  - Hospitalisation [Unknown]
